FAERS Safety Report 15655268 (Version 1)
Quarter: 2018Q4

REPORT INFORMATION
  Report Type: Report from Study
  Country: None (occurrence: CO)
  Receive Date: 20181126
  Receipt Date: 20181126
  Transmission Date: 20190205
  Serious: Yes (Other)
  Sender: FDA-Public Use
  Company Number: CO-ABBVIE-18K-036-2567485-00

PATIENT
  Age: 69 Year
  Sex: Female
  Weight: 72 kg

DRUGS (4)
  1. HUMIRA [Suspect]
     Active Substance: ADALIMUMAB
     Indication: RHEUMATOID ARTHRITIS
  2. HUMIRA [Suspect]
     Active Substance: ADALIMUMAB
     Indication: RHEUMATOID ARTHRITIS
  3. HUMIRA [Suspect]
     Active Substance: ADALIMUMAB
     Indication: PSORIASIS
     Route: 058
     Dates: start: 20110214
  4. HUMIRA [Suspect]
     Active Substance: ADALIMUMAB
     Indication: PSORIASIS
     Dosage: HUMIRA AC
     Route: 058

REACTIONS (6)
  - Exostosis [Recovering/Resolving]
  - Blood cholesterol increased [Recovering/Resolving]
  - Spinal osteoarthritis [Recovering/Resolving]
  - Blood triglycerides increased [Recovering/Resolving]
  - Rheumatoid arthritis [Recovering/Resolving]
  - Ingrowing nail [Recovering/Resolving]

NARRATIVE: CASE EVENT DATE: 201809
